FAERS Safety Report 21484302 (Version 1)
Quarter: 2022Q4

REPORT INFORMATION
  Report Type: Spontaneous
  Country: CN (occurrence: CN)
  Receive Date: 20221020
  Receipt Date: 20221020
  Transmission Date: 20230112
  Serious: No
  Sender: FDA-Public Use
  Company Number: CN-ELI_LILLY_AND_COMPANY-CN202210005216

PATIENT
  Age: 53 Year
  Sex: Female
  Weight: 49 kg

DRUGS (2)
  1. DULOXETINE HYDROCHLORIDE [Suspect]
     Active Substance: DULOXETINE HYDROCHLORIDE
     Indication: Depressed mood
     Dosage: 60 MG, DAILY
     Route: 048
     Dates: start: 20220915, end: 20221010
  2. OLANZAPINE [Suspect]
     Active Substance: OLANZAPINE
     Indication: Depressed mood
     Dosage: 2.5 MG, DAILY
     Route: 048
     Dates: start: 20220915, end: 20221010

REACTIONS (1)
  - Transaminases increased [Recovering/Resolving]

NARRATIVE: CASE EVENT DATE: 20220929
